FAERS Safety Report 18331032 (Version 1)
Quarter: 2020Q3

REPORT INFORMATION
  Report Type: Spontaneous
  Country: US (occurrence: US)
  Receive Date: 20200930
  Receipt Date: 20200930
  Transmission Date: 20201103
  Serious: No
  Sender: FDA-Public Use
  Company Number: US-NEXGEN PHARMA, INC.-2092322

PATIENT
  Age: 45 Year
  Sex: Female

DRUGS (1)
  1. CHENODAL [Suspect]
     Active Substance: CHENODIOL
     Indication: LIVER DISORDER
     Route: 048
     Dates: start: 20160309

REACTIONS (2)
  - Flat affect [Unknown]
  - Joint swelling [Unknown]
